FAERS Safety Report 18199096 (Version 2)
Quarter: 2020Q3

REPORT INFORMATION
  Report Type: Report from Study
  Country: None (occurrence: US)
  Receive Date: 20200826
  Receipt Date: 20200918
  Transmission Date: 20201103
  Serious: No
  Sender: FDA-Public Use
  Company Number: US-ABBVIE-20K-163-3537097-00

PATIENT
  Age: 62 Year
  Sex: Female
  Weight: 87.85 kg

DRUGS (8)
  1. ACYCLOVIR [ACICLOVIR] [Concomitant]
     Active Substance: ACYCLOVIR
     Indication: ORAL MUCOSAL BLISTERING
  2. RINVOQ [Suspect]
     Active Substance: UPADACITINIB
     Indication: RHEUMATOID ARTHRITIS
     Route: 048
     Dates: start: 20200728, end: 20200901
  3. TRULANCE [Concomitant]
     Active Substance: PLECANATIDE
     Indication: GASTROINTESTINAL MOTILITY DISORDER
  4. CALCIUM [Concomitant]
     Active Substance: CALCIUM
     Indication: PRODUCT USED FOR UNKNOWN INDICATION
  5. CITALOPRAM [Concomitant]
     Active Substance: CITALOPRAM HYDROBROMIDE
     Indication: DEPRESSION
  6. MONTELUKAST SODIUM. [Concomitant]
     Active Substance: MONTELUKAST SODIUM
     Indication: NASAL INFLAMMATION
  7. ARMOUR THYROID [Concomitant]
     Active Substance: THYROID, PORCINE
     Indication: HYPOTHYROIDISM
  8. VASCEPA [Concomitant]
     Active Substance: ICOSAPENT ETHYL
     Indication: MALABSORPTION

REACTIONS (6)
  - Erythema [Recovering/Resolving]
  - Nail bed disorder [Recovering/Resolving]
  - Onychalgia [Recovering/Resolving]
  - Localised infection [Recovering/Resolving]
  - Acrochordon [Recovering/Resolving]
  - Purulence [Recovered/Resolved]

NARRATIVE: CASE EVENT DATE: 20200811
